FAERS Safety Report 5989972-1 (Version None)
Quarter: 2008Q4

REPORT INFORMATION
  Report Type: 
  Country: None (occurrence: None)
  Receive Date: 20081211
  Receipt Date: 20081020
  Transmission Date: 20090506
  Serious: No
  Sender: FDA-Public Use
  Company Number: SE-BAYER-200816926GPV

PATIENT

DRUGS (1)
  1. ACETYLSALICYLIC ACID SRT [Suspect]
     Indication: DRUG USE FOR UNKNOWN INDICATION
     Route: 065

REACTIONS (1)
  - GASTROINTESTINAL HAEMORRHAGE [None]
